FAERS Safety Report 9006072 (Version 1)
Quarter: 2013Q1

REPORT INFORMATION
  Report Type: Spontaneous
  Country: US (occurrence: US)
  Receive Date: 20130109
  Receipt Date: 20130109
  Transmission Date: 20140127
  Serious: Yes (Other)
  Sender: FDA-Public Use
  Company Number: GXBR2013US000455

PATIENT
  Age: 56 None
  Sex: Male
  Weight: 70.3 kg

DRUGS (9)
  1. INDOMETHACIN [Suspect]
     Indication: MYALGIA
     Dosage: 75 MG, QD
     Route: 048
     Dates: start: 20120717, end: 201212
  2. SUTENT [Suspect]
     Indication: RENAL CANCER STAGE IV
     Dosage: 50 MG, UNK
     Dates: start: 201206, end: 20120713
  3. SUTENT [Suspect]
     Dosage: UNK
  4. NEOSPORIN                          /00038301/ [Concomitant]
     Indication: NASAL DRYNESS
     Dosage: UNK DF, UNK
     Route: 045
     Dates: start: 201207
  5. IRON [Concomitant]
     Indication: ANAEMIA
     Dosage: UNK DF, UNK
     Dates: start: 201207
  6. AMBIEN [Concomitant]
     Indication: SLEEP DISORDER
     Dosage: 5 MG, QHS AND AT 3AM
  7. SIMVASTATIN [Concomitant]
     Dosage: UNK MG, UNK
  8. MULTI-VIT [Concomitant]
     Dosage: UNK DF, UNK
  9. GLUCOSAMINE + CHONDROITIN          /01430901/ [Concomitant]
     Dosage: UNK DF, UNK

REACTIONS (22)
  - Pleurisy [Recovered/Resolved]
  - Chest pain [Unknown]
  - Productive cough [Not Recovered/Not Resolved]
  - Tinnitus [Recovering/Resolving]
  - Hair colour changes [Unknown]
  - Feeling abnormal [Recovered/Resolved]
  - Hair texture abnormal [Unknown]
  - Palmar-plantar erythrodysaesthesia syndrome [Recovering/Resolving]
  - Fatigue [None]
  - Hypermetabolism [None]
  - Heart rate increased [None]
  - Pyrexia [None]
  - Weight decreased [None]
  - Myalgia [None]
  - Oral pain [None]
  - Blister [None]
  - Diarrhoea [None]
  - Middle insomnia [None]
  - Flatulence [None]
  - Anaemia [None]
  - Epistaxis [None]
  - Nasal dryness [None]
